FAERS Safety Report 23059764 (Version 6)
Quarter: 2023Q4

REPORT INFORMATION
  Report Type: Spontaneous
  Country: GR (occurrence: GR)
  Receive Date: 20231012
  Receipt Date: 20231220
  Transmission Date: 20240109
  Serious: Yes (Other)
  Sender: FDA-Public Use
  Company Number: GR-009507513-2309GRC008995

PATIENT
  Age: 70 Year
  Sex: Male

DRUGS (3)
  1. AXITINIB [Suspect]
     Active Substance: AXITINIB
     Indication: Metastatic renal cell carcinoma
     Dosage: UNK
  2. AXITINIB [Suspect]
     Active Substance: AXITINIB
     Dosage: UNK
  3. KEYTRUDA [Suspect]
     Active Substance: PEMBROLIZUMAB
     Indication: Metastatic renal cell carcinoma
     Dosage: UNK

REACTIONS (2)
  - Skin necrosis [Unknown]
  - Colostomy [Unknown]
